FAERS Safety Report 8506767 (Version 2)
Quarter: 2012Q4

REPORT INFORMATION
  Report Type: 
  Country: US (occurrence: US)
  Receive Date: 20120412
  Receipt Date: 20121204
  Transmission Date: 20130627
  Serious: No
  Sender: FDA-Public Use
  Company Number: US-ASTRAZENECA-2011SE41365

PATIENT
  Age: 59 Year
  Sex: Female

DRUGS (1)
  1. NEXIUM [Suspect]
     Route: 048

REACTIONS (9)
  - Systemic lupus erythematosus [Unknown]
  - Gait disturbance [Unknown]
  - Intelligence test abnormal [Unknown]
  - Condition aggravated [Unknown]
  - Dyspnoea [Unknown]
  - Ulcer haemorrhage [Unknown]
  - Malaise [Unknown]
  - Photosensitivity reaction [Unknown]
  - Intentional drug misuse [Unknown]
